FAERS Safety Report 14304526 (Version 1)
Quarter: 2017Q4

REPORT INFORMATION
  Report Type: Spontaneous
  Country: JP (occurrence: JP)
  Receive Date: 20171219
  Receipt Date: 20171219
  Transmission Date: 20180321
  Serious: Yes (Hospitalization, Other)
  Sender: FDA-Public Use
  Company Number: JP-OTSUKA-03100-JPN-07-0157

PATIENT
  Age: 42 Year
  Sex: Male
  Weight: 51 kg

DRUGS (9)
  1. SILECE [Concomitant]
     Active Substance: FLUNITRAZEPAM
     Dosage: 2 MG, QD
     Route: 048
     Dates: start: 20070306, end: 20070319
  2. FLUNITRAZEPAM [Concomitant]
     Active Substance: FLUNITRAZEPAM
     Indication: INSOMNIA
     Dosage: 2 MG, UNK
     Route: 048
     Dates: start: 20070306, end: 20070319
  3. HALCION [Concomitant]
     Active Substance: TRIAZOLAM
     Dosage: 0.25 MG, QD
     Route: 048
     Dates: start: 20070206, end: 20070319
  4. HALCION [Concomitant]
     Active Substance: TRIAZOLAM
     Dosage: 0.5 MG, QD
     Route: 048
     Dates: start: 20070320
  5. ABILIFY [Suspect]
     Active Substance: ARIPIPRAZOLE
     Dosage: 3 MG, BID
     Route: 048
     Dates: start: 20070306, end: 20070402
  6. LUVOX [Concomitant]
     Active Substance: FLUVOXAMINE MALEATE
     Dosage: 25 MG, BID
     Route: 048
     Dates: start: 20070320
  7. LUVOX [Concomitant]
     Active Substance: FLUVOXAMINE MALEATE
     Dosage: 50 MG, BID
     Route: 048
     Dates: start: 20070306, end: 20070319
  8. TRIAZOLAM. [Concomitant]
     Active Substance: TRIAZOLAM
     Indication: INSOMNIA
     Dosage: DOSE CHANGED TO .5 MG ON 20-MAR-2007
     Route: 048
     Dates: start: 20070206, end: 20070319
  9. FLUVOXAMINE [Concomitant]
     Active Substance: FLUVOXAMINE
     Indication: DEPRESSION
     Dosage: 06-MAR-2007 - 19-MAR-2007: 100 MG; 20-MAR-2007 - CON^T: 50 MG
     Route: 048
     Dates: start: 20070306

REACTIONS (2)
  - Hypokalaemia [Recovered/Resolved]
  - Diarrhoea [Recovering/Resolving]

NARRATIVE: CASE EVENT DATE: 20070307
